FAERS Safety Report 9464844 (Version 4)
Quarter: 2013Q4

REPORT INFORMATION
  Report Type: Spontaneous
  Country: US (occurrence: US)
  Receive Date: 20130819
  Receipt Date: 20131101
  Transmission Date: 20140711
  Serious: Yes (Hospitalization, Other)
  Sender: FDA-Public Use
  Company Number: US-PFIZER INC-2013235664

PATIENT
  Age: 74 Year
  Sex: Female

DRUGS (7)
  1. SUTENT [Suspect]
     Indication: METASTATIC RENAL CELL CARCINOMA
     Dosage: 12.5 MG, UNK
     Dates: start: 20130514
  2. DILTIAZEM [Concomitant]
     Dosage: 180 MG, (Q 24 H)
     Route: 048
  3. ENOXAPARIN [Concomitant]
     Dosage: 30 MG, (Q 12 H)
     Route: 058
  4. INSULIN [Concomitant]
     Dosage: (BEFORE MEALS)
     Route: 058
  5. POTASSIUM PHOSPHATE/SODIUM PHOSPHATE [Concomitant]
     Dosage: 250 MG, 2X/DAY
     Route: 048
  6. MORPHINE SULFATE [Concomitant]
     Dosage: 4 MG, (Q 4 H)
     Route: 042
  7. SIMVASTATIN [Concomitant]
     Dosage: 10 MG, 1X/DAY (NIGHTLY)
     Route: 048

REACTIONS (30)
  - Dyspnoea [Unknown]
  - Ascites [Unknown]
  - Biliary dilatation [Unknown]
  - Failure to thrive [Unknown]
  - Pleural effusion [Unknown]
  - Wound [Unknown]
  - Ulcer [Unknown]
  - Sinus tachycardia [Unknown]
  - Cough [Recovered/Resolved]
  - Fatigue [Unknown]
  - Orthopnoea [Unknown]
  - Palpitations [Unknown]
  - Blood pressure diastolic decreased [Unknown]
  - Heart rate increased [Unknown]
  - Weight increased [Unknown]
  - White blood cell count increased [Unknown]
  - Lymphocyte count decreased [Unknown]
  - Eosinophil count increased [Unknown]
  - Neutrophil count increased [Unknown]
  - Atelectasis [Unknown]
  - Lymphadenopathy [Unknown]
  - Obesity [Unknown]
  - Malaise [Unknown]
  - Anaemia [Unknown]
  - Sinusitis [Unknown]
  - Gastrooesophageal reflux disease [Unknown]
  - Granuloma [Unknown]
  - Renal cyst [Unknown]
  - Disease progression [Unknown]
  - Metastatic renal cell carcinoma [Unknown]
